FAERS Safety Report 17908550 (Version 1)
Quarter: 2020Q2

REPORT INFORMATION
  Report Type: Spontaneous
  Country: IN (occurrence: IN)
  Receive Date: 20200617
  Receipt Date: 20200617
  Transmission Date: 20200714
  Serious: Yes (Hospitalization, Other)
  Sender: FDA-Public Use
  Company Number: IN-PFIZER INC-2020231245

PATIENT
  Age: 64 Year
  Sex: Male

DRUGS (1)
  1. CRIZOTINIB [Suspect]
     Active Substance: CRIZOTINIB
     Indication: LUNG ADENOCARCINOMA
     Dosage: 250 MG, 2X/DAY (CYCLIC)

REACTIONS (5)
  - Conjunctival oedema [Recovered/Resolved]
  - Respiratory distress [Recovering/Resolving]
  - Lower respiratory tract infection [Recovering/Resolving]
  - Pneumonitis [Recovering/Resolving]
  - Chronic obstructive pulmonary disease [Recovering/Resolving]
